FAERS Safety Report 7346909-0 (Version None)
Quarter: 2011Q1

REPORT INFORMATION
  Report Type: 
  Country: None (occurrence: None)
  Receive Date: 20110302
  Receipt Date: 20110122
  Transmission Date: 20110831
  Serious: No
  Sender: FDA-Public Use
  Company Number: 2011-00027

PATIENT
  Age: 96 Year
  Sex: Female
  Weight: 65.318 kg

DRUGS (4)
  1. ZICAM COLD REMEDY ORAL MIST [Suspect]
     Dosage: QD X 2 DAYS
     Dates: start: 20110120, end: 20110121
  2. ATENOLOL [Concomitant]
  3. CALTRATE [Concomitant]
  4. ASPIRIN [Concomitant]

REACTIONS (2)
  - AGEUSIA [None]
  - HYPOAESTHESIA ORAL [None]
